FAERS Safety Report 18617593 (Version 5)
Quarter: 2021Q2

REPORT INFORMATION
  Report Type: Report from Study
  Country: US (occurrence: US)
  Receive Date: 20201215
  Receipt Date: 20210617
  Transmission Date: 20210717
  Serious: Yes (Other)
  Sender: FDA-Public Use
  Company Number: NVSC2020US329496

PATIENT
  Age: 61 Year
  Sex: Female

DRUGS (2)
  1. MAYZENT [Suspect]
     Active Substance: SIPONIMOD
     Indication: MULTIPLE SCLEROSIS
     Dosage: 2 MG, QD
     Route: 048
  2. MAYZENT [Suspect]
     Active Substance: SIPONIMOD
     Dosage: 2 MG, QD
     Route: 048
     Dates: start: 201912

REACTIONS (2)
  - Transient ischaemic attack [Recovered/Resolved]
  - Dyskinesia [Unknown]

NARRATIVE: CASE EVENT DATE: 20210508
